FAERS Safety Report 9407453 (Version 2)
Quarter: 2013Q3

REPORT INFORMATION
  Report Type: Spontaneous
  Country: US (occurrence: US)
  Receive Date: 20130718
  Receipt Date: 20130805
  Transmission Date: 20140515
  Serious: Yes (Death, Hospitalization)
  Sender: FDA-Public Use
  Company Number: US-INCYTE CORPORATION-2013IN001536

PATIENT
  Age: 75 Year
  Sex: Male
  Weight: 13.7 kg

DRUGS (2)
  1. JAKAFI [Suspect]
     Indication: MYELOFIBROSIS
     Dosage: 10-25 MG, TWICE DAILY
     Route: 048
     Dates: start: 201201
  2. JAKAFI [Suspect]
     Dosage: 25 MG, BID
     Route: 048

REACTIONS (3)
  - Pneumonia [Fatal]
  - Acute respiratory distress syndrome [Fatal]
  - Respiratory failure [Fatal]
